FAERS Safety Report 11713701 (Version 2)
Quarter: 2017Q1

REPORT INFORMATION
  Report Type: Spontaneous
  Country: NP (occurrence: NP)
  Receive Date: 20151109
  Receipt Date: 20170223
  Transmission Date: 20170428
  Serious: Yes (Other)
  Sender: FDA-Public Use
  Company Number: NP-SUN PHARMACEUTICAL INDUSTRIES LTD-2015R1-105648

PATIENT
  Age: 26 Year
  Sex: Female

DRUGS (3)
  1. TIZANIDINE. [Suspect]
     Active Substance: TIZANIDINE
     Indication: TORTICOLLIS
     Dosage: 2 MG, TID
     Route: 065
  2. ACETAMINOPHEN. [Concomitant]
     Active Substance: ACETAMINOPHEN
     Indication: TORTICOLLIS
     Dosage: 500 MG, QID
     Route: 065
  3. FAMOTIDINE. [Interacting]
     Active Substance: FAMOTIDINE
     Indication: DYSPEPSIA
     Dosage: 40 MG, QD
     Route: 065

REACTIONS (2)
  - Cystitis [Recovering/Resolving]
  - Drug interaction [Recovering/Resolving]
